FAERS Safety Report 9684662 (Version 1)
Quarter: 2013Q4

REPORT INFORMATION
  Report Type: Spontaneous
  Country: US (occurrence: None)
  Receive Date: 20131108
  Receipt Date: 20131108
  Transmission Date: 20140711
  Serious: Yes (Other)
  Sender: FDA-Public Use
  Company Number: ADR-2013-02026

PATIENT
  Sex: Female

DRUGS (1)
  1. BACLOFEN [Suspect]
     Indication: MUSCLE SPASTICITY

REACTIONS (20)
  - Synovial cyst [None]
  - Catheter site related reaction [None]
  - Pruritus generalised [None]
  - Skin burning sensation [None]
  - Headache [None]
  - Body temperature fluctuation [None]
  - Chills [None]
  - Feeling hot [None]
  - Pain [None]
  - Abdominal distension [None]
  - Cerebrospinal fluid leakage [None]
  - Amyotrophic lateral sclerosis [None]
  - Drug hypersensitivity [None]
  - Medical device discomfort [None]
  - Gastric disorder [None]
  - Diaphragmatic disorder [None]
  - Implant site pain [None]
  - Incorrect dose administered by device [None]
  - Implant site cyst [None]
  - Blood pressure abnormal [None]
